FAERS Safety Report 15357479 (Version 2)
Quarter: 2018Q3

REPORT INFORMATION
  Report Type: Spontaneous
  Country: CH (occurrence: CH)
  Receive Date: 20180906
  Receipt Date: 20180913
  Transmission Date: 20181010
  Serious: Yes (Hospitalization)
  Sender: FDA-Public Use
  Company Number: CH-MYLANLABS-2018M1065433

PATIENT
  Age: 83 Year
  Sex: Male

DRUGS (4)
  1. TURMERIC                           /01079601/ [Suspect]
     Active Substance: HERBALS\TURMERIC
     Indication: PRODUCT USED FOR UNKNOWN INDICATION
     Dosage: COMPRESSE A BASE DI CURCUMA AL DOSAGGIO DI 279 G, NON NOTA POSOLOGIA, NON NOTA DATA DI INIZIO TER...
     Dates: end: 20180818
  2. COVERSUM N COMBI [Suspect]
     Active Substance: INDAPAMIDE\PERINDOPRIL ARGININE
     Indication: PRODUCT USED FOR UNKNOWN INDICATION
     Dosage: DATA DI INIZIO TERAPIA NON NOTA; COVERSUM N COMBI 5/1.25 MG
     Route: 048
     Dates: end: 20180818
  3. PANTOZOL [Concomitant]
     Active Substance: PANTOPRAZOLE SODIUM
     Indication: PRODUCT USED FOR UNKNOWN INDICATION
     Dosage: 20 MG, QD
     Route: 048
  4. BRUFEN [Suspect]
     Active Substance: IBUPROFEN
     Indication: CERVICAL VERTEBRAL FRACTURE
     Dosage: TERAPIA INIZIATA A SEGUITO DELLA RECENTE FRATTURA CERVICALE, NON NOTO ESATTAMENTE DA QUANDO
     Route: 048
     Dates: start: 201807, end: 20180818

REACTIONS (4)
  - Nausea [Unknown]
  - Confusional state [Recovered/Resolved]
  - Hyponatraemia [Recovering/Resolving]
  - Vomiting [Recovered/Resolved]

NARRATIVE: CASE EVENT DATE: 201808
